FAERS Safety Report 8967001 (Version 1)
Quarter: 2012Q4

REPORT INFORMATION
  Report Type: 
  Country: IT (occurrence: IT)
  Receive Date: 20121214
  Receipt Date: 20121214
  Transmission Date: 20130627
  Serious: Yes (Other)
  Sender: FDA-Public Use
  Company Number: IT-MYLANLABS-2012S1025171

PATIENT
  Age: 69 Year
  Sex: Female

DRUGS (3)
  1. TERAZOSIN [Suspect]
     Indication: PRODUCT USED FOR UNKNOWN INDICATION
     Route: 048
     Dates: start: 20121118, end: 20121118
  2. SINEMET [Concomitant]
     Indication: PRODUCT USED FOR UNKNOWN INDICATION
     Route: 048
  3. LOBIDIUR [Concomitant]
     Indication: PRODUCT USED FOR UNKNOWN INDICATION
     Route: 048

REACTIONS (3)
  - Atrial fibrillation [Recovering/Resolving]
  - Hypotension [Recovering/Resolving]
  - Drug abuse [Recovering/Resolving]
